FAERS Safety Report 4302981-3 (Version None)
Quarter: 2004Q1

REPORT INFORMATION
  Report Type: 
  Country: None (occurrence: None)
  Receive Date: 20040224
  Receipt Date: 20040223
  Transmission Date: 20041129
  Serious: Yes (Other)
  Sender: FDA-Public Use
  Company Number: US-GLAXOSMITHKLINE-A0499437A

PATIENT
  Age: 26 Year
  Sex: Female

DRUGS (2)
  1. PAXIL [Suspect]
     Indication: DEPRESSION
     Dosage: 40MG PER DAY
     Route: 048
     Dates: start: 20020101, end: 20030101
  2. LOW-OGESTREL [Concomitant]

REACTIONS (15)
  - ANKLE FRACTURE [None]
  - BURNS SECOND DEGREE [None]
  - BURNS THIRD DEGREE [None]
  - CELLULITIS [None]
  - IMMUNE SYSTEM DISORDER [None]
  - IMPAIRED HEALING [None]
  - INFECTION [None]
  - JOINT INJURY [None]
  - MUSCLE CRAMP [None]
  - MUSCLE INJURY [None]
  - PHARYNGITIS STREPTOCOCCAL [None]
  - PHOTOSENSITIVITY REACTION [None]
  - SINUS CONGESTION [None]
  - SUNBURN [None]
  - TONSILLAR HYPERTROPHY [None]
